FAERS Safety Report 4486890-5 (Version None)
Quarter: 2004Q3

REPORT INFORMATION
  Report Type: 
  Country: None (occurrence: None)
  Receive Date: 20040921
  Receipt Date: 20031002
  Transmission Date: 20050211
  Serious: Yes (Hospitalization)
  Sender: FDA-Public Use
  Company Number: 163-20785-03100126

PATIENT
  Age: 47 Year
  Sex: Female

DRUGS (7)
  1. THALOMID [Suspect]
     Indication: MULTIPLE MYELOMA
     Dosage: 200 MG, DAILY, ORAL
     Route: 048
     Dates: start: 20030716, end: 20030721
  2. DEXAMETHASONE [Suspect]
     Indication: MULTIPLE MYELOMA
     Dosage: 40 MG, ORAL
     Route: 048
     Dates: start: 20030716, end: 20030719
  3. CISPLATIN [Suspect]
     Indication: MULTIPLE MYELOMA
     Dosage: 16 MG, INTRAVENOUS
     Route: 042
     Dates: start: 20030716, end: 20030719
  4. ADRIAMYCIN PFS [Suspect]
     Indication: MULTIPLE MYELOMA
     Dosage: 64 MG, INTRAVENOUS
     Route: 042
     Dates: start: 20030716, end: 20030719
  5. CYCLOPHOSPHAMIDE [Suspect]
     Indication: MULTIPLE MYELOMA
     Dosage: 656 MG, INTRAVENOUS
     Route: 042
     Dates: start: 20030716, end: 20030719
  6. ETOPOSIDE [Suspect]
     Indication: MULTIPLE MYELOMA
     Dosage: 66 MG, INTRAVENOUS
     Route: 042
     Dates: start: 20030716, end: 20030719
  7. MELPHALAN (MELPHALAN) [Suspect]
     Indication: MULTIPLE MYELOMA
     Dosage: 336 MG, INTRAVENOUS
     Route: 042
     Dates: start: 20030814, end: 20030814

REACTIONS (3)
  - DIARRHOEA [None]
  - NAUSEA [None]
  - VOMITING [None]
